FAERS Safety Report 8208755-5 (Version None)
Quarter: 2012Q1

REPORT INFORMATION
  Report Type: 
  Country: None (occurrence: None)
  Receive Date: 20120314
  Receipt Date: 20120229
  Transmission Date: 20120608
  Serious: Yes (Other)
  Sender: FDA-Public Use
  Company Number: US-ROCHE-1041860

PATIENT
  Sex: Female
  Weight: 89.892 kg

DRUGS (7)
  1. BONIVA [Suspect]
     Indication: PRODUCT USED FOR UNKNOWN INDICATION
     Route: 048
     Dates: start: 20060101
  2. BONIVA [Suspect]
     Dates: end: 20100825
  3. BONIVA [Suspect]
     Dates: start: 20080623
  4. BONIVA [Suspect]
     Dates: start: 20100825
  5. ACTONEL [Suspect]
     Indication: PRODUCT USED FOR UNKNOWN INDICATION
     Dates: start: 20050101
  6. BONIVA [Suspect]
     Route: 048
     Dates: start: 20090626, end: 20100201
  7. BONIVA [Suspect]
     Dates: start: 20070605

REACTIONS (9)
  - FOOT FRACTURE [None]
  - BONE DISORDER [None]
  - ANXIETY DISORDER [None]
  - RASH [None]
  - STRESS FRACTURE [None]
  - CHONDROPATHY [None]
  - ARTHRITIS [None]
  - ANKLE FRACTURE [None]
  - FEMUR FRACTURE [None]
